FAERS Safety Report 14660711 (Version 1)
Quarter: 2018Q1

REPORT INFORMATION
  Report Type: Report from Study
  Country: CA (occurrence: CA)
  Receive Date: 20180320
  Receipt Date: 20180320
  Transmission Date: 20180509
  Serious: Yes (Other)
  Sender: FDA-Public Use
  Company Number: CA-JNJFOC-20180211289

PATIENT
  Age: 53 Year
  Sex: Female
  Weight: 76.2 kg

DRUGS (2)
  1. SIMPONI [Suspect]
     Active Substance: GOLIMUMAB
     Indication: CROHN^S DISEASE
     Dosage: STRENGTH = 100 MG
     Route: 058
     Dates: start: 20180207
  2. SIMPONI [Suspect]
     Active Substance: GOLIMUMAB
     Indication: CROHN^S DISEASE
     Route: 058
     Dates: start: 20180222

REACTIONS (11)
  - Faeces discoloured [Unknown]
  - Product use in unapproved indication [Unknown]
  - Abdominal pain upper [Recovering/Resolving]
  - Oral herpes [Unknown]
  - Urinary tract infection bacterial [Unknown]
  - Abnormal faeces [Unknown]
  - Influenza like illness [Unknown]
  - Off label use [Unknown]
  - Night sweats [Unknown]
  - Injection related reaction [Unknown]
  - Diarrhoea [Recovering/Resolving]

NARRATIVE: CASE EVENT DATE: 2018
